FAERS Safety Report 18360703 (Version 1)
Quarter: 2020Q4

REPORT INFORMATION
  Report Type: Spontaneous
  Country: US (occurrence: US)
  Receive Date: 20201008
  Receipt Date: 20201008
  Transmission Date: 20210114
  Serious: Yes (Other)
  Sender: FDA-Public Use
  Company Number: None

PATIENT
  Age: 83 Year
  Sex: Female
  Weight: 66.6 kg

DRUGS (1)
  1. HEPARIN 25000UNITS/250ML [Suspect]
     Active Substance: HEPARIN SODIUM
     Dates: start: 20200729, end: 20200731

REACTIONS (4)
  - Embolic stroke [None]
  - Thrombocytopenia [None]
  - Venous thrombosis [None]
  - Atrial thrombosis [None]

NARRATIVE: CASE EVENT DATE: 20200806
